FAERS Safety Report 6261174-3 (Version None)
Quarter: 2009Q3

REPORT INFORMATION
  Report Type: 
  Country: None (occurrence: None)
  Receive Date: 20090709
  Receipt Date: 20080619
  Transmission Date: 20100115
  Serious: No
  Sender: FDA-Public Use
  Company Number: US-KINGPHARMUSA00001-K200800730

PATIENT
  Sex: Male
  Weight: 104.31 kg

DRUGS (4)
  1. LEVOXYL [Suspect]
     Indication: THYROIDECTOMY
     Dosage: 175 MCG, TIW
     Route: 048
     Dates: start: 20010101, end: 20080613
  2. LEVOXYL [Suspect]
     Dosage: 150 MCG, FOUR TIMES WEEKLY
     Route: 048
     Dates: start: 20010101, end: 20080613
  3. LEVOXYL [Suspect]
     Dosage: 175 MCG, QD
     Dates: start: 20080613
  4. LISINOPRIL [Concomitant]
     Indication: HYPERTENSION
     Dosage: 30 MG, QD

REACTIONS (2)
  - ANXIETY [None]
  - THYROID FUNCTION TEST ABNORMAL [None]
